FAERS Safety Report 6547595-X (Version None)
Quarter: 2010Q1

REPORT INFORMATION
  Report Type: 
  Country: None (occurrence: None)
  Receive Date: 20100122
  Receipt Date: 20100120
  Transmission Date: 20100710
  Serious: Yes (Other)
  Sender: FDA-Public Use
  Company Number: CA-MERCK-1001CAN00183

PATIENT
  Age: 75 Year
  Sex: Female

DRUGS (4)
  1. PRINIVIL [Suspect]
     Route: 048
  2. OMEPRAZOLE MAGNESIUM [Concomitant]
     Route: 065
  3. AMLODIPINE BESYLATE [Concomitant]
     Route: 065
  4. SIMVASTATIN [Concomitant]
     Route: 048

REACTIONS (3)
  - CONJUNCTIVITIS [None]
  - ECZEMA [None]
  - VULVOVAGINAL CANDIDIASIS [None]
